FAERS Safety Report 9387038 (Version 1)
Quarter: 2013Q3

REPORT INFORMATION
  Report Type: Spontaneous
  Country: US (occurrence: US)
  Receive Date: 20130708
  Receipt Date: 20130708
  Transmission Date: 20140515
  Serious: No
  Sender: FDA-Public Use
  Company Number: US-BRISTOL-MYERS SQUIBB COMPANY-17374067

PATIENT
  Age: 79 Year
  Sex: Male
  Weight: 83.9 kg

DRUGS (8)
  1. ABILIFY DISCMELT TABS [Suspect]
     Dates: start: 20130111
  2. DEPAKOTE [Suspect]
     Dosage: DEPAKOTE WAS DECREASED TO 750MG
  3. ARICEPT [Concomitant]
  4. BABY ASPIRIN [Concomitant]
  5. VALSARTAN [Concomitant]
  6. ATORVASTATIN [Concomitant]
  7. AVODART [Concomitant]
  8. METOPROLOL [Concomitant]

REACTIONS (4)
  - Somnolence [Unknown]
  - Lethargy [Unknown]
  - Increased appetite [Unknown]
  - Weight increased [Unknown]
